FAERS Safety Report 8183709-6 (Version None)
Quarter: 2012Q1

REPORT INFORMATION
  Report Type: 
  Country: None (occurrence: None)
  Receive Date: 20120130
  Receipt Date: 20111019
  Transmission Date: 20120608
  Serious: Yes (Hospitalization)
  Sender: FDA-Public Use
  Company Number: 043747

PATIENT
  Age: 41 Year
  Sex: Male
  Weight: 76 kg

DRUGS (3)
  1. VALPROATE SODIUM [Concomitant]
  2. KEPPRA [Suspect]
     Indication: EPILEPSY
     Dosage: (3000 MG, TOTAL DAILY DOSE: 3000 MG ORAL), (1250 MG, TOTAL DAILY DOSE:  1250 MG ORAL)
     Route: 048
     Dates: end: 20111001
  3. KEPPRA [Suspect]
     Indication: EPILEPSY
     Dosage: (3000 MG, TOTAL DAILY DOSE: 3000 MG ORAL), (1250 MG, TOTAL DAILY DOSE:  1250 MG ORAL)
     Route: 048
     Dates: start: 20000601

REACTIONS (1)
  - CONVULSION [None]
